FAERS Safety Report 4616162-7 (Version None)
Quarter: 2005Q1

REPORT INFORMATION
  Report Type: 
  Country: None (occurrence: None)
  Receive Date: 20050323
  Receipt Date: 20050315
  Transmission Date: 20050727
  Serious: Yes (Hospitalization)
  Sender: FDA-Public Use
  Company Number: GB-BOEHRINGER INGELHEIM PHARMACEUTICALS, INC.-2005-BP-04387RO

PATIENT
  Age: 71 Year
  Sex: Female

DRUGS (2)
  1. METHOTREXATE [Suspect]
     Indication: PSORIASIS
     Dosage: 7.5 MG/WEEK
     Route: 048
  2. MORPHINE [Suspect]
     Indication: BACK PAIN
     Dosage: 20 MG QID
     Route: 048

REACTIONS (5)
  - DEHYDRATION [None]
  - DRUG TOXICITY [None]
  - MOUTH ULCERATION [None]
  - PANCYTOPENIA [None]
  - RENAL FAILURE ACUTE [None]
